FAERS Safety Report 6166142-8 (Version None)
Quarter: 2009Q2

REPORT INFORMATION
  Report Type: 
  Country: None (occurrence: None)
  Receive Date: 20090424
  Receipt Date: 20090415
  Transmission Date: 20091009
  Serious: Yes (Hospitalization)
  Sender: FDA-Public Use
  Company Number: JP-ABBOTT-09P-087-0563517-00

PATIENT
  Sex: Female
  Weight: 52 kg

DRUGS (6)
  1. HUMIRA [Suspect]
     Indication: RHEUMATOID ARTHRITIS
     Route: 058
     Dates: start: 20090304, end: 20090318
  2. ETODOLAC [Concomitant]
     Indication: RHEUMATOID ARTHRITIS
  3. SODIUM GUALENATE HYDRATE, L-GLUTAMINE [Concomitant]
     Indication: RHEUMATOID ARTHRITIS
  4. PRAVASTATIN SODIUM [Concomitant]
     Indication: RHEUMATOID ARTHRITIS
  5. PREDNISOLONE [Concomitant]
     Indication: RHEUMATOID ARTHRITIS
  6. MIZORIBINE [Concomitant]
     Indication: RHEUMATOID ARTHRITIS
     Dates: start: 20081106, end: 20090403

REACTIONS (6)
  - CHILLS [None]
  - INJECTION SITE ERYTHEMA [None]
  - INJECTION SITE INDURATION [None]
  - INJECTION SITE PRURITUS [None]
  - LYMPHADENOPATHY [None]
  - PYREXIA [None]
